FAERS Safety Report 10779616 (Version 1)
Quarter: 2015Q1

REPORT INFORMATION
  Report Type: Spontaneous
  Country: US (occurrence: US)
  Receive Date: 20150210
  Receipt Date: 20150210
  Transmission Date: 20150721
  Serious: Yes (Other)
  Sender: FDA-Public Use
  Company Number: US-SA-2015SA016041

PATIENT
  Age: 58 Year
  Sex: Female
  Weight: 62.59 kg

DRUGS (11)
  1. FABRAZYME [Suspect]
     Active Substance: AGALSIDASE BETA
     Indication: FABRY^S DISEASE
     Route: 042
     Dates: start: 20130130
  2. CLARITIN [Concomitant]
     Active Substance: LORATADINE
  3. LIDOCAINE. [Concomitant]
     Active Substance: LIDOCAINE
  4. ACETAMINOPHEN. [Concomitant]
     Active Substance: ACETAMINOPHEN
  5. DIPHENHYDRAMINE [Concomitant]
     Active Substance: DIPHENHYDRAMINE
  6. PRILOCAINE [Concomitant]
     Active Substance: PRILOCAINE
  7. NORMAL SALINE [Concomitant]
     Active Substance: SODIUM CHLORIDE
  8. SOLU-CORTEF [Concomitant]
     Active Substance: HYDROCORTISONE SODIUM SUCCINATE
  9. LORATADINE. [Concomitant]
     Active Substance: LORATADINE
  10. EPIPEN [Concomitant]
     Active Substance: EPINEPHRINE
  11. AVASTIN [Concomitant]
     Active Substance: BEVACIZUMAB
     Dosage: EVERY 4 WEEKS

REACTIONS (2)
  - Retinal vein occlusion [Unknown]
  - Macular oedema [Unknown]
